FAERS Safety Report 5449954-5 (Version None)
Quarter: 2007Q3

REPORT INFORMATION
  Report Type: 
  Country: None (occurrence: None)
  Receive Date: 20070912
  Receipt Date: 20070905
  Transmission Date: 20080115
  Serious: Yes (Hospitalization)
  Sender: FDA-Public Use
  Company Number: US-JNJFOC-20070901439

PATIENT
  Age: 7 Decade
  Sex: Female

DRUGS (3)
  1. LEVAQUIN [Suspect]
     Indication: SEPSIS
     Route: 065
  2. RANEXA [Suspect]
     Indication: DRUG USE FOR UNKNOWN INDICATION
     Route: 048
  3. FUROSEMIDE [Concomitant]
     Route: 065

REACTIONS (1)
  - DELIRIUM [None]
